FAERS Safety Report 18595536 (Version 1)
Quarter: 2020Q4

REPORT INFORMATION
  Report Type: Spontaneous
  Country: US (occurrence: US)
  Receive Date: 20201208
  Receipt Date: 20201208
  Transmission Date: 20210114
  Serious: Yes (Death)
  Sender: FDA-Public Use
  Company Number: None

PATIENT
  Sex: Female

DRUGS (4)
  1. CAPECITABINE. [Suspect]
     Active Substance: CAPECITABINE
  2. LOSARTAN. [Suspect]
     Active Substance: LOSARTAN
  3. GABAPENTIN. [Suspect]
     Active Substance: GABAPENTIN
  4. LEVOTHYROXINE. [Suspect]
     Active Substance: LEVOTHYROXINE

REACTIONS (1)
  - Death [None]
